FAERS Safety Report 4303303-4 (Version None)
Quarter: 2004Q1

REPORT INFORMATION
  Report Type: 
  Country: None (occurrence: None)
  Receive Date: 20040223
  Receipt Date: 20040211
  Transmission Date: 20041129
  Serious: No
  Sender: FDA-Public Use
  Company Number: 2004198664SE

PATIENT
  Sex: Female

DRUGS (7)
  1. PREDNISOLONE [Suspect]
     Dates: start: 20000615, end: 20010301
  2. LEVOTHYROXINE SODIUM [Concomitant]
  3. SERTRALINE HCL [Concomitant]
  4. FUROSEMIDE [Concomitant]
  5. CARVEDILOL [Concomitant]
  6. SOBRIL [Concomitant]
  7. ISRADIPINE [Concomitant]

REACTIONS (2)
  - OSTEOARTHRITIS [None]
  - OSTEONECROSIS [None]
